FAERS Safety Report 8954268 (Version 2)
Quarter: 2013Q3

REPORT INFORMATION
  Report Type: Report from Study
  Country: BR (occurrence: BR)
  Receive Date: 20121207
  Receipt Date: 20130806
  Transmission Date: 20140515
  Serious: Yes (Other)
  Sender: FDA-Public Use
  Company Number: PHHY2012BR110796

PATIENT
  Sex: Female
  Weight: 56 kg

DRUGS (6)
  1. GILENYA [Suspect]
     Indication: MULTIPLE SCLEROSIS
     Dosage: 0.5 MG, QD
     Route: 048
     Dates: start: 201207
  2. BACLOFEN [Concomitant]
     Indication: MUSCLE SPASMS
     Dosage: 10 MG, TID
  3. DANTALIN [Concomitant]
     Indication: FEELING OF RELAXATION
     Dosage: 1 DF, BID
  4. DOMPERIDONE [Concomitant]
     Indication: GASTROINTESTINAL DISORDER
     Dosage: UNK UKN, UNK
  5. MOVILAX [Concomitant]
  6. FRENURIN [Concomitant]
     Indication: URINARY INCONTINENCE
     Dosage: 5 MG, QD

REACTIONS (29)
  - Cerebrovascular accident [Recovered/Resolved]
  - Monoplegia [Recovered/Resolved]
  - Limb discomfort [Recovered/Resolved]
  - Oral discomfort [Recovered/Resolved]
  - Gait disturbance [Recovered/Resolved]
  - Posture abnormal [Not Recovered/Not Resolved]
  - Feeling abnormal [Unknown]
  - Muscle mass [Not Recovered/Not Resolved]
  - Paralysis [Unknown]
  - Hypoaesthesia [Not Recovered/Not Resolved]
  - Muscle strain [Not Recovered/Not Resolved]
  - Laziness [Not Recovered/Not Resolved]
  - Grip strength decreased [Not Recovered/Not Resolved]
  - Malaise [Not Recovered/Not Resolved]
  - Flatulence [Not Recovered/Not Resolved]
  - Musculoskeletal discomfort [Not Recovered/Not Resolved]
  - Asthenia [Unknown]
  - Weight decreased [Not Recovered/Not Resolved]
  - Musculoskeletal pain [Unknown]
  - Urinary incontinence [Unknown]
  - Gastrointestinal disorder [Recovered/Resolved]
  - Constipation [Recovered/Resolved]
  - Abdominal distension [Recovered/Resolved]
  - Discomfort [Recovered/Resolved]
  - Pain [Recovered/Resolved]
  - Anxiety [Recovered/Resolved]
  - Moaning [Recovered/Resolved]
  - Somnolence [Recovered/Resolved]
  - Drug ineffective [Unknown]
